FAERS Safety Report 23444242 (Version 2)
Quarter: 2024Q1

REPORT INFORMATION
  Report Type: Report from Study
  Country: US (occurrence: None)
  Receive Date: 20240125
  Receipt Date: 20240313
  Transmission Date: 20240409
  Serious: Yes (Other)
  Sender: FDA-Public Use
  Company Number: 2024A013670

PATIENT
  Age: 73 Year
  Sex: Female

DRUGS (1)
  1. TEZSPIRE [Suspect]
     Active Substance: TEZEPELUMAB-EKKO
     Indication: Asthma
     Dosage: 210G/ML EVERY FOUR WEEKS
     Dates: start: 20231216

REACTIONS (1)
  - Inflammation [Unknown]

NARRATIVE: CASE EVENT DATE: 20240107
